FAERS Safety Report 12311893 (Version 3)
Quarter: 2016Q3

REPORT INFORMATION
  Report Type: Spontaneous
  Country: JP (occurrence: JP)
  Receive Date: 20160427
  Receipt Date: 20160728
  Transmission Date: 20161109
  Serious: Yes (Other)
  Sender: FDA-Public Use
  Company Number: JP-ASTRAZENECA-2016SE44762

PATIENT
  Age: 29648 Day
  Sex: Female
  Weight: 49 kg

DRUGS (2)
  1. NESINA [Suspect]
     Active Substance: ALOGLIPTIN BENZOATE
     Indication: DIABETES MELLITUS
     Route: 048
     Dates: start: 20141119, end: 20160212
  2. FORXIGA [Suspect]
     Active Substance: DAPAGLIFLOZIN
     Indication: DIABETES MELLITUS
     Route: 048
     Dates: start: 20150911, end: 20160212

REACTIONS (8)
  - Gastric cancer [Unknown]
  - Liver disorder [Recovered/Resolved]
  - Weight decreased [Recovered/Resolved]
  - Cholestasis [Unknown]
  - Biliary dilatation [Unknown]
  - Malaise [Unknown]
  - Decreased appetite [Recovered/Resolved]
  - Vomiting [Unknown]

NARRATIVE: CASE EVENT DATE: 20160212
